FAERS Safety Report 7325401-3 (Version None)
Quarter: 2011Q1

REPORT INFORMATION
  Report Type: 
  Country: None (occurrence: None)
  Receive Date: 20110302
  Receipt Date: 20110221
  Transmission Date: 20110831
  Serious: Yes (Hospitalization)
  Sender: FDA-Public Use
  Company Number: JP-JNJFOC-20100511025

PATIENT
  Sex: Male
  Weight: 70 kg

DRUGS (1)
  1. ITRIZOLE [Suspect]
     Indication: ONYCHOMYCOSIS
     Dosage: PULSE THERAPY
     Route: 048

REACTIONS (6)
  - STEVENS-JOHNSON SYNDROME [None]
  - ENANTHEMA [None]
  - LARYNGEAL OEDEMA [None]
  - PYREXIA [None]
  - DRUG ERUPTION [None]
  - PRURITUS [None]
